FAERS Safety Report 17561168 (Version 1)
Quarter: 2020Q1

REPORT INFORMATION
  Report Type: Spontaneous
  Country: PT (occurrence: PT)
  Receive Date: 20200319
  Receipt Date: 20200319
  Transmission Date: 20200409
  Serious: Yes (Other)
  Sender: FDA-Public Use
  Company Number: PT-MYLANLABS-2019M1126423

PATIENT
  Sex: Female

DRUGS (14)
  1. ADALIMUMAB [Suspect]
     Active Substance: ADALIMUMAB
     Indication: JUVENILE IDIOPATHIC ARTHRITIS
     Dosage: 24 MG/M2/EVERY TWO WEEKS
     Route: 058
     Dates: start: 2014
  2. TIMOLOL. [Suspect]
     Active Substance: TIMOLOL
     Indication: INTRAOCULAR PRESSURE INCREASED
     Dosage: 5 MG/ML (TWICE DAILY EACH, IN BOTH EYES)
     Route: 061
  3. METHOTREXATE. [Suspect]
     Active Substance: METHOTREXATE
     Indication: JUVENILE IDIOPATHIC ARTHRITIS
     Dosage: UNK
     Route: 058
  4. IBUPROFEN. [Suspect]
     Active Substance: IBUPROFEN
     Indication: JUVENILE IDIOPATHIC ARTHRITIS
     Dosage: 30 MILLIGRAM/KILOGRAM, QD
     Route: 048
     Dates: start: 2010
  5. DEFLAZACORT [Suspect]
     Active Substance: DEFLAZACORT
     Indication: JUVENILE IDIOPATHIC ARTHRITIS
     Dosage: 0.5 MILLIGRAM/KILOGRAM, QD
     Route: 048
     Dates: start: 2011
  6. LATANOPROST. [Suspect]
     Active Substance: LATANOPROST
     Indication: GLAUCOMA
     Dosage: 0.05 MILLIGRAM PER MILLILITRE
     Route: 061
     Dates: start: 2014
  7. DEXAMETASON                        /00016001/ [Suspect]
     Active Substance: DEXAMETHASONE
     Indication: PRODUCT USED FOR UNKNOWN INDICATION
     Dosage: TWICE DAILY EACH, IN BOTH EYES
     Route: 061
  8. ACETAZOLAMIDE. [Suspect]
     Active Substance: ACETAZOLAMIDE
     Dosage: 250 MG, UNK
     Route: 048
     Dates: start: 2014
  9. BRINZOLAMIDE [Suspect]
     Active Substance: BRINZOLAMIDE
     Indication: INTRAOCULAR PRESSURE TEST
     Dosage: 10 MILLIGRAM PER MILLILITRE
     Route: 061
  10. METHOTREXATE. [Suspect]
     Active Substance: METHOTREXATE
     Indication: JUVENILE IDIOPATHIC ARTHRITIS
     Dosage: 15 MILLIGRAM/SQ. METER, QW
     Route: 048
     Dates: start: 2011
  11. TOCILIZUMAB. [Concomitant]
     Active Substance: TOCILIZUMAB
     Indication: PRODUCT USED FOR UNKNOWN INDICATION
     Dosage: 12 MG/KG/EVERY TWO WEEKS
     Route: 042
  12. ADALIMUMAB [Suspect]
     Active Substance: ADALIMUMAB
     Indication: PSORIASIS
     Dosage: 24 MG/M2, BIW
     Route: 058
  13. BRIMONIDINE [Suspect]
     Active Substance: BRIMONIDINE TARTRATE
     Indication: INTRAOCULAR PRESSURE TEST
     Dosage: 2 MILLIGRAM PER MILLILITRE
     Route: 061
  14. ACETAZOLAMIDE. [Suspect]
     Active Substance: ACETAZOLAMIDE
     Indication: GLAUCOMA
     Dosage: 250 MILLIGRAM, QD
     Route: 048
     Dates: start: 2014

REACTIONS (4)
  - Drug ineffective [Unknown]
  - Body height below normal [Unknown]
  - Cushing^s syndrome [Unknown]
  - Muscle atrophy [Unknown]
